FAERS Safety Report 7198317-3 (Version None)
Quarter: 2010Q4

REPORT INFORMATION
  Report Type: 
  Country: None (occurrence: None)
  Receive Date: 20101223
  Receipt Date: 20101223
  Transmission Date: 20110411
  Serious: No
  Sender: FDA-Public Use
  Company Number: None

PATIENT
  Sex: Female
  Weight: 49.8957 kg

DRUGS (2)
  1. PROPRANOLOL HYDROCHLORIDE [Suspect]
     Indication: HEADACHE
     Dosage: 60 MG 1 DAY 1C PROPRANOLOL SA
     Dates: start: 20101018
  2. PROPRANOLOL HYDROCHLORIDE [Suspect]
     Indication: NERVOUSNESS
     Dosage: 60 MG 1 DAY 1C PROPRANOLOL SA
     Dates: start: 20101018

REACTIONS (2)
  - DIZZINESS [None]
  - FALL [None]
